FAERS Safety Report 10353791 (Version 1)
Quarter: 2014Q3

REPORT INFORMATION
  Report Type: Spontaneous
  Country: US (occurrence: None)
  Receive Date: 20140729
  Receipt Date: 20140729
  Transmission Date: 20150326
  Serious: Yes (Other)
  Sender: FDA-Public Use
  Company Number: None

PATIENT
  Age: 59 Year
  Sex: Female

DRUGS (1)
  1. CEFTAROLINE [Suspect]
     Active Substance: CEFTAROLINE
     Indication: INFECTION
     Dosage: CEFTAROLINE 600MG BID INTRAVENOUS
     Route: 042

REACTIONS (1)
  - Neutropenia [None]

NARRATIVE: CASE EVENT DATE: 20140714
